FAERS Safety Report 5241232-2 (Version None)
Quarter: 2007Q1

REPORT INFORMATION
  Report Type: 
  Country: None (occurrence: None)
  Receive Date: 20070212
  Receipt Date: 20070212
  Transmission Date: 20070707
  Serious: Yes (Hospitalization)
  Sender: FDA-Public Use
  Company Number: None

PATIENT
  Age: 60 Year
  Sex: Male

DRUGS (14)
  1. MORPHINE [Suspect]
     Indication: PROCEDURAL PAIN
     Dates: start: 20061015, end: 20061021
  2. ACETAMINOPHEN [Concomitant]
  3. ALBUTEROL [Concomitant]
  4. AMYLASE/LIPASE/PROTEASE [Concomitant]
  5. CALCIUM CARBONATE/VITAMIN D [Concomitant]
  6. CEFAZOLIN [Concomitant]
  7. CHLORDIAZEPOXIDE HCL [Concomitant]
  8. DILTIAZEM [Concomitant]
  9. DOCUSATE SODIUM [Concomitant]
  10. FORMOTEROL FUMARATE [Concomitant]
  11. HEPARIN [Concomitant]
  12. HYDROCHLOROTHIAZIDE [Concomitant]
  13. IPRATROPIUM BROMIDE [Concomitant]
  14. MAGNESIUM HYDROXIDE TAB [Concomitant]

REACTIONS (1)
  - HYPOTENSION [None]
